FAERS Safety Report 10175178 (Version 1)
Quarter: 2014Q2

REPORT INFORMATION
  Report Type: Spontaneous
  Country: US (occurrence: US)
  Receive Date: 20140515
  Receipt Date: 20140515
  Transmission Date: 20141212
  Serious: No
  Sender: FDA-Public Use
  Company Number: US-VIVUS-2014V1000077

PATIENT
  Sex: Female

DRUGS (1)
  1. QSYMIA 7.5MG/46MG [Suspect]
     Indication: PRODUCT USED FOR UNKNOWN INDICATION
     Route: 048

REACTIONS (5)
  - Dysgeusia [Recovered/Resolved]
  - Dry mouth [Not Recovered/Not Resolved]
  - Paraesthesia oral [Recovered/Resolved]
  - Paraesthesia [Recovered/Resolved]
  - Insomnia [Recovered/Resolved]
